FAERS Safety Report 12592353 (Version 1)
Quarter: 2016Q3

REPORT INFORMATION
  Report Type: Spontaneous
  Country: US (occurrence: None)
  Receive Date: 20160725
  Receipt Date: 20160725
  Transmission Date: 20161109
  Serious: Yes (Disabling)
  Sender: FDA-Public Use
  Company Number: None

PATIENT
  Age: 68 Year
  Sex: Female
  Weight: 96.16 kg

DRUGS (1)
  1. AMIODARONE, 200 MG [Suspect]
     Active Substance: AMIODARONE
     Indication: ATRIAL FIBRILLATION
     Route: 048
     Dates: start: 20150615, end: 20150901

REACTIONS (2)
  - Colour blindness [None]
  - Visual impairment [None]

NARRATIVE: CASE EVENT DATE: 20150701
